FAERS Safety Report 7961528-0 (Version None)
Quarter: 2011Q4

REPORT INFORMATION
  Report Type: 
  Country: None (occurrence: None)
  Receive Date: 20111207
  Receipt Date: 20111129
  Transmission Date: 20120403
  Serious: Yes (Hospitalization)
  Sender: FDA-Public Use
  Company Number: JP-ASTELLAS-2011JP007931

PATIENT
  Sex: Male
  Weight: 62 kg

DRUGS (19)
  1. METHYLPREDNISOLONE [Concomitant]
     Dosage: 250 MG, UNKNOWN/D
     Route: 042
     Dates: start: 20100826, end: 20100826
  2. METHYLPREDNISOLONE [Concomitant]
     Dosage: 40 MG, UNKNOWN/D
     Route: 042
     Dates: start: 20100830, end: 20100830
  3. METHYLPREDNISOLONE [Concomitant]
     Dosage: 16 MG, UNKNOWN/D
     Route: 048
     Dates: start: 20100902, end: 20100901
  4. MYCOPHENOLATE MOFETIL (CELLCEPT) [Suspect]
     Dosage: 1000 MG, UNKNOWN/D
     Route: 048
     Dates: start: 20100101
  5. MYCOPHENOLATE MOFETIL (CELLCEPT) [Suspect]
     Dosage: 2000 MG, UNKNOWN/D
     Route: 048
     Dates: start: 20100909, end: 20100101
  6. METHYLPREDNISOLONE [Concomitant]
     Dosage: 4 MG, UNKNOWN/D
     Route: 048
     Dates: start: 20100909, end: 20100909
  7. BASILIXIMAB [Concomitant]
     Dosage: 20 MG, UNKNOWN/D
     Route: 042
     Dates: start: 20100830, end: 20100830
  8. TACROLIMUS [Concomitant]
     Indication: PROPHYLAXIS AGAINST TRANSPLANT REJECTION
     Dosage: 6 MG, UID/QD
     Route: 048
     Dates: start: 20100824, end: 20100830
  9. METHYLPREDNISOLONE [Concomitant]
     Dosage: 80 MG, UNKNOWN/D
     Route: 042
     Dates: start: 20100828, end: 20100828
  10. PROGRAF [Suspect]
     Indication: PROPHYLAXIS AGAINST TRANSPLANT REJECTION
     Dosage: 3 MG, BID
     Route: 048
     Dates: start: 20100903
  11. METHYLPREDNISOLONE [Concomitant]
     Dosage: 125 MG, UNKNOWN/D
     Route: 042
     Dates: start: 20100827, end: 20100827
  12. BASILIXIMAB [Concomitant]
     Dosage: 20 MG, UNKNOWN/D
     Route: 042
     Dates: start: 20100826, end: 20100826
  13. LOSARTAN POTASSIUM [Concomitant]
     Indication: HYPERTENSION
     Dosage: 25 MG, BID
     Route: 048
     Dates: end: 20101107
  14. TACROLIMUS [Concomitant]
     Dosage: 7 MG, UID/QD
     Route: 048
     Dates: start: 20100831, end: 20100901
  15. METHYLPREDNISOLONE [Concomitant]
     Dosage: 60 MG, UNKNOWN/D
     Route: 042
     Dates: start: 20100829, end: 20100829
  16. METHYLPREDNISOLONE [Concomitant]
     Dosage: 20 MG, UNKNOWN/D
     Route: 048
     Dates: start: 20100831, end: 20100901
  17. MYCOPHENOLATE MOFETIL (CELLCEPT) [Suspect]
     Indication: PROPHYLAXIS AGAINST TRANSPLANT REJECTION
     Dosage: 2000 MG, UNKNOWN/D
     Route: 048
     Dates: end: 20100901
  18. OMEPRAZOLE [Suspect]
     Indication: PROPHYLAXIS AGAINST GASTROINTESTINAL ULCER
     Dosage: 20 MG, UID/QD
     Route: 048
     Dates: start: 20100828, end: 20101022
  19. TACROLIMUS [Concomitant]
     Dosage: 8 MG, UID/QD
     Route: 048
     Dates: start: 20100902, end: 20100902

REACTIONS (3)
  - NASOPHARYNGITIS [None]
  - PERIODONTITIS [None]
  - WHITE BLOOD CELL COUNT DECREASED [None]
